FAERS Safety Report 14281558 (Version 1)
Quarter: 2017Q4

REPORT INFORMATION
  Report Type: Spontaneous
  Country: RU (occurrence: RU)
  Receive Date: 20171213
  Receipt Date: 20171213
  Transmission Date: 20180321
  Serious: Yes (Death, Life-Threatening)
  Sender: FDA-Public Use
  Company Number: RU-BAXTER-2017BAX041336

PATIENT
  Age: 38 Year
  Sex: Male
  Weight: 70 kg

DRUGS (7)
  1. SEVOFLURAN [Suspect]
     Active Substance: SEVOFLURANE
     Indication: ANAESTHESIA PROCEDURE
     Dosage: 2%
     Route: 055
     Dates: start: 20170314, end: 20170314
  2. LISTENON [Suspect]
     Active Substance: SUCCINYLCHOLINE
     Indication: PRODUCT USED FOR UNKNOWN INDICATION
     Route: 042
     Dates: start: 20170314, end: 20170314
  3. CEFAZOLINE [Suspect]
     Active Substance: CEFAZOLIN SODIUM
     Indication: PRODUCT USED FOR UNKNOWN INDICATION
     Route: 030
     Dates: start: 20170307, end: 20170313
  4. TRACRIUM [Suspect]
     Active Substance: ATRACURIUM BESYLATE
     Indication: ANAESTHESIA
     Route: 042
     Dates: start: 20170314, end: 20170314
  5. KETONAL [Suspect]
     Active Substance: KETOPROFEN
     Indication: ANALGESIC THERAPY
     Route: 030
     Dates: start: 20170307, end: 20170313
  6. OMEZ [Suspect]
     Active Substance: OMEPRAZOLE
     Indication: PRODUCT USED FOR UNKNOWN INDICATION
     Route: 048
     Dates: start: 20170307, end: 20170313
  7. PROVIVE [Suspect]
     Active Substance: PROPOFOL
     Indication: INDUCTION OF ANAESTHESIA
     Route: 042
     Dates: start: 20170314, end: 20170314

REACTIONS (1)
  - Anaphylactic shock [Fatal]

NARRATIVE: CASE EVENT DATE: 20170314
